FAERS Safety Report 21416167 (Version 1)
Quarter: 2022Q4

REPORT INFORMATION
  Report Type: Spontaneous
  Country: US (occurrence: US)
  Receive Date: 20221006
  Receipt Date: 20221006
  Transmission Date: 20230112
  Serious: Yes (Other)
  Sender: FDA-Public Use
  Company Number: US-ALLERGAN-2202902US

PATIENT
  Age: 69 Year
  Sex: Female
  Weight: 77.098 kg

DRUGS (6)
  1. VRAYLAR [Suspect]
     Active Substance: CARIPRAZINE
     Indication: Bipolar disorder
     Dosage: 1.5 MG
     Dates: end: 20220119
  2. LAMOTRIGINE [Concomitant]
     Active Substance: LAMOTRIGINE
     Indication: Seizure
     Dosage: 200 MG, BID
  3. SERTRALINE [Concomitant]
     Active Substance: SERTRALINE HYDROCHLORIDE
     Dosage: 100 MG, BID
  4. LORAZEPAM [Concomitant]
     Active Substance: LORAZEPAM
     Dosage: 100 MG, BID
  5. BACLOFEN [Concomitant]
     Active Substance: BACLOFEN
     Dosage: 10 MG, BID
  6. ATORVASTATIN [Concomitant]
     Active Substance: ATORVASTATIN
     Dosage: 80 MG, QD

REACTIONS (1)
  - Seizure [Recovered/Resolved]

NARRATIVE: CASE EVENT DATE: 20220119
